FAERS Safety Report 24936816 (Version 1)
Quarter: 2025Q1

REPORT INFORMATION
  Report Type: Report from Study
  Country: CA (occurrence: CA)
  Receive Date: 20250206
  Receipt Date: 20250206
  Transmission Date: 20250409
  Serious: Yes (Other)
  Sender: JOHNSON AND JOHNSON
  Company Number: CA-JNJFOC-20250129446

PATIENT
  Age: 72 Year
  Sex: Male

DRUGS (6)
  1. SIMPONI [Suspect]
     Active Substance: GOLIMUMAB
     Indication: Rheumatoid arthritis
     Route: 058
     Dates: start: 20230426
  2. PREDNISONE [Concomitant]
     Active Substance: PREDNISONE
  3. ASPIRIN [Concomitant]
     Active Substance: ASPIRIN
  4. PERINDOPRIL [Concomitant]
     Active Substance: PERINDOPRIL
  5. CALCIUM [Concomitant]
     Active Substance: CALCIUM
  6. METHOTREXATE [Concomitant]
     Active Substance: METHOTREXATE
     Dosage: UNIT DOSE REPORTED AS 2 (UNITS UNSPECIFIED)  AND DOSE  ALSO REPORTED AS 2 TABLETS ON FRIDAY.

REACTIONS (2)
  - Pneumonia [Recovered/Resolved]
  - COVID-19 [Recovered/Resolved]

NARRATIVE: CASE EVENT DATE: 20250101
